FAERS Safety Report 9697439 (Version 1)
Quarter: 2013Q4

REPORT INFORMATION
  Report Type: Spontaneous
  Country: US (occurrence: US)
  Receive Date: 20131120
  Receipt Date: 20131120
  Transmission Date: 20140711
  Serious: Yes (Other)
  Sender: FDA-Public Use
  Company Number: US-BAYER-2013-140655

PATIENT
  Age: 40 Year
  Sex: Female

DRUGS (3)
  1. YASMIN [Suspect]
  2. ACTOS [Concomitant]
     Indication: DIABETES MELLITUS
  3. ACEON [Concomitant]
     Indication: HYPERTENSION

REACTIONS (2)
  - Deep vein thrombosis [None]
  - Pulmonary embolism [None]
